FAERS Safety Report 5826353-5 (Version None)
Quarter: 2008Q3

REPORT INFORMATION
  Report Type: 
  Country: None (occurrence: None)
  Receive Date: 20080724
  Receipt Date: 20080708
  Transmission Date: 20090109
  Serious: Yes (Hospitalization)
  Sender: FDA-Public Use
  Company Number: 8034623

PATIENT
  Sex: Female

DRUGS (4)
  1. LEVETIRACETAM [Suspect]
     Dosage: PO
     Route: 048
  2. LEVETIRACETAM [Suspect]
     Dosage: PO
     Route: 048
  3. PHENYTOIN [Concomitant]
  4. BENZODIAZEPINES [Concomitant]

REACTIONS (5)
  - ABORTION INDUCED [None]
  - ANXIETY [None]
  - DRUG EXPOSURE DURING PREGNANCY [None]
  - FALL [None]
  - STATUS EPILEPTICUS [None]
